FAERS Safety Report 10461238 (Version 2)
Quarter: 2014Q4

REPORT INFORMATION
  Report Type: Spontaneous
  Country: CH (occurrence: None)
  Receive Date: 20140916
  Receipt Date: 20141003
  Transmission Date: 20150528
  Serious: Yes (Disabling)
  Sender: FDA-Public Use
  Company Number: 20140595

PATIENT
  Age: 29 Year
  Sex: Female

DRUGS (1)
  1. FERINJECT [Suspect]
     Active Substance: FERRIC CARBOXYMALTOSE
     Indication: ANAEMIA
     Dosage: 2 AMPOULES, INTRAVENOUS DRIP
     Route: 041
     Dates: start: 20140813, end: 20140825

REACTIONS (7)
  - Wrong technique in drug usage process [None]
  - Nausea [None]
  - Dysgeusia [None]
  - Headache [None]
  - Parosmia [None]
  - Vomiting [None]
  - Asthenia [None]

NARRATIVE: CASE EVENT DATE: 20140813
